FAERS Safety Report 5200649-2 (Version None)
Quarter: 2006Q4

REPORT INFORMATION
  Report Type: 
  Country: None (occurrence: None)
  Receive Date: 20061016
  Receipt Date: 20060706
  Transmission Date: 20070319
  Serious: No
  Sender: FDA-Public Use
  Company Number: 2006SP002624

PATIENT
  Age: 81 Year
  Sex: Male
  Weight: 91.6266 kg

DRUGS (9)
  1. LUNESTA [Suspect]
     Indication: INSOMNIA
     Dosage: 3 MG; HS; ORAL
     Route: 048
     Dates: start: 20060601
  2. GABAPENTIN [Concomitant]
  3. ZOLOFT [Concomitant]
  4. CLARITIN [Concomitant]
  5. TAMSULOSIN HCL [Concomitant]
  6. DICLOFENAC SODIUM [Concomitant]
  7. ATENOLOL [Concomitant]
  8. FUROSEMIDE [Concomitant]
  9. HYDROCODONE [Concomitant]

REACTIONS (1)
  - INSOMNIA [None]
